FAERS Safety Report 9937730 (Version 1)
Quarter: 2014Q1

REPORT INFORMATION
  Report Type: Spontaneous
  Country: US (occurrence: US)
  Receive Date: 20140303
  Receipt Date: 20140303
  Transmission Date: 20141002
  Serious: No
  Sender: FDA-Public Use
  Company Number: US-BIOGENIDEC-2014BI015957

PATIENT
  Age: 55 Year
  Sex: Female

DRUGS (15)
  1. TECFIDERA [Suspect]
     Indication: MULTIPLE SCLEROSIS
     Route: 048
     Dates: start: 20130808
  2. ABILIFY [Concomitant]
  3. CELEXA [Concomitant]
  4. ESTRACE [Concomitant]
  5. FENOFIBRATE [Concomitant]
  6. LOVASTATIN [Concomitant]
  7. NEURONTIN [Concomitant]
  8. OMEPRAZOLE [Concomitant]
  9. PROVIL [Concomitant]
  10. QUETIAPINE FUMARATE [Concomitant]
  11. RELPAX [Concomitant]
  12. TIZANIDINE HCL [Concomitant]
  13. TRAMADOL HCL [Concomitant]
  14. TRAZODONE HCL [Concomitant]
  15. ZOLOFT [Concomitant]

REACTIONS (1)
  - Gastric disorder [Unknown]
